FAERS Safety Report 16029089 (Version 1)
Quarter: 2019Q1

REPORT INFORMATION
  Report Type: Spontaneous
  Country: RU (occurrence: RU)
  Receive Date: 20190304
  Receipt Date: 20190304
  Transmission Date: 20190418
  Serious: Yes (Life-Threatening, Other)
  Sender: FDA-Public Use
  Company Number: PHHY2019RU048220

PATIENT
  Age: 39 Year
  Sex: Male

DRUGS (2)
  1. AFINITOR [Suspect]
     Active Substance: EVEROLIMUS
     Indication: PRODUCT USED FOR UNKNOWN INDICATION
     Dosage: 10 MG, UNK
     Route: 065
     Dates: start: 2014
  2. AFINITOR [Suspect]
     Active Substance: EVEROLIMUS
     Dosage: 5 MG, UNK
     Route: 065

REACTIONS (20)
  - Haemoptysis [Unknown]
  - Weight decreased [Unknown]
  - Cough [Unknown]
  - Dyspnoea [Unknown]
  - Headache [Unknown]
  - Body temperature increased [Unknown]
  - Disease progression [Unknown]
  - Alveolitis [Unknown]
  - Myalgia [Unknown]
  - Hyperhidrosis [Unknown]
  - Productive cough [Unknown]
  - Eructation [Unknown]
  - Fatigue [Unknown]
  - Diarrhoea [Unknown]
  - Hepatic pain [Unknown]
  - Gingivitis [Unknown]
  - Blood pressure increased [Unknown]
  - Insomnia [Unknown]
  - Decreased appetite [Unknown]
  - Pyrexia [Unknown]
